FAERS Safety Report 12621342 (Version 1)
Quarter: 2016Q3

REPORT INFORMATION
  Report Type: Spontaneous
  Country: US (occurrence: None)
  Receive Date: 20160803
  Receipt Date: 20160803
  Transmission Date: 20161109
  Serious: Yes (Congenital Anomaly)
  Sender: FDA-Public Use
  Company Number: None

PATIENT
  Age: 54 Year
  Sex: Female

DRUGS (1)
  1. TASIGNA [Suspect]
     Active Substance: NILOTINIB
     Indication: MYELOID LEUKAEMIA

REACTIONS (4)
  - White blood cell count decreased [None]
  - Skin disorder [None]
  - Liver disorder [None]
  - Acne [None]

NARRATIVE: CASE EVENT DATE: 20160720
